FAERS Safety Report 14779981 (Version 3)
Quarter: 2018Q3

REPORT INFORMATION
  Report Type: Report from Study
  Country: IT (occurrence: IT)
  Receive Date: 20180419
  Receipt Date: 20180802
  Transmission Date: 20181010
  Serious: Yes (Other)
  Sender: FDA-Public Use
  Company Number: IT-SA-2018SA106228

PATIENT
  Age: 58 Year
  Sex: Male

DRUGS (7)
  1. ACETYLSALICYLIC ACID [Interacting]
     Active Substance: ASPIRIN
     Dosage: 100 MG,QD
     Route: 048
     Dates: start: 20170401, end: 20170510
  2. KETOPROFEN. [Interacting]
     Active Substance: KETOPROFEN
     Dosage: UNK UNK,UNK
     Route: 065
     Dates: start: 20170401, end: 20170510
  3. LANSOX [Interacting]
     Active Substance: LANSOPRAZOLE
     Dosage: 30 MG,QD
     Route: 048
     Dates: start: 20170401, end: 20170510
  4. ENOXAPARIN SODIUM. [Suspect]
     Active Substance: ENOXAPARIN SODIUM
     Dosage: .4 ML,QCY
     Route: 030
     Dates: start: 20170401, end: 20170401
  5. CLOPIDOGREL BISULFATE. [Interacting]
     Active Substance: CLOPIDOGREL BISULFATE
     Indication: MYOCARDIAL INFARCTION
     Dosage: 75 MG,QD
     Route: 048
     Dates: start: 20170401, end: 20170510
  6. ENOXAPARIN SODIUM. [Interacting]
     Active Substance: ENOXAPARIN SODIUM
     Dosage: .4 ML,QCY
     Route: 030
     Dates: start: 20170510, end: 20170510
  7. CARDICOR [Interacting]
     Active Substance: BISOPROLOL
     Indication: CARDIAC FAILURE
     Dosage: 5 MG,QD
     Route: 048
     Dates: start: 20170401, end: 20170510

REACTIONS (2)
  - Angioedema [Recovering/Resolving]
  - Coronary artery disease [Recovering/Resolving]

NARRATIVE: CASE EVENT DATE: 20170510
